FAERS Safety Report 8291239-6 (Version None)
Quarter: 2012Q2

REPORT INFORMATION
  Report Type: 
  Country: None (occurrence: None)
  Receive Date: 20120417
  Receipt Date: 20120405
  Transmission Date: 20120825
  Serious: Yes (Other)
  Sender: FDA-Public Use
  Company Number: GB-BRISTOL-MYERS SQUIBB COMPANY-16505323

PATIENT
  Age: 37 Year
  Sex: Female

DRUGS (8)
  1. LAMIVUDINE [Suspect]
     Indication: HIV INFECTION
  2. ZIDOVUDINE [Suspect]
     Indication: HIV INFECTION
  3. EFAVIRENZ [Suspect]
     Indication: HIV INFECTION
  4. RITONAVIR [Suspect]
     Indication: HIV INFECTION
  5. RIFAMPICIN [Suspect]
     Indication: MENINGITIS TUBERCULOUS
  6. ISONIAZID [Suspect]
     Indication: MENINGITIS TUBERCULOUS
  7. PYRAZINAMIDE [Suspect]
     Indication: MENINGITIS TUBERCULOUS
  8. ETHAMBUTOL HYDROCHLORIDE [Suspect]
     Indication: MENINGITIS TUBERCULOUS

REACTIONS (5)
  - LYMPH NODE TUBERCULOSIS [None]
  - HERPES OESOPHAGITIS [None]
  - IMMUNE RECONSTITUTION SYNDROME [None]
  - TUBERCULOUS ABSCESS CENTRAL NERVOUS SYSTEM [None]
  - TRANSAMINASES INCREASED [None]
